FAERS Safety Report 8572565-X (Version None)
Quarter: 2012Q2

REPORT INFORMATION
  Report Type: 
  Country: None (occurrence: None)
  Receive Date: 20120423
  Receipt Date: 20091109
  Transmission Date: 20120825
  Serious: Yes (Other)
  Sender: FDA-Public Use
  Company Number: PHEH2009US10727

PATIENT
  Age: 25 Year
  Sex: Female

DRUGS (7)
  1. MULTIVITAMINS (ASCORBIC ACID, ERGOCALCIFEROL, FOLIC ACID, NICOTINAMIDE [Concomitant]
  2. PERCOCET [Concomitant]
  3. EXJADE [Suspect]
     Indication: SICKLE CELL ANAEMIA
     Dosage: 1000 MG, QD, ORAL
     Route: 048
     Dates: start: 20090810, end: 20091002
  4. OXYCODONE HCL [Concomitant]
  5. FOLIC ACID [Concomitant]
  6. HYDROXYUREA (HYXOXYCARBAMIDE) [Concomitant]
  7. ESTRACE [Concomitant]

REACTIONS (13)
  - WHITE BLOOD CELL COUNT INCREASED [None]
  - BLOOD CHLORIDE INCREASED [None]
  - MALAISE [None]
  - BLOOD BILIRUBIN INCREASED [None]
  - VOMITING [None]
  - DRUG DOSE OMISSION [None]
  - BLOOD CALCIUM DECREASED [None]
  - PAIN [None]
  - PYREXIA [None]
  - CHEST PAIN [None]
  - SICKLE CELL ANAEMIA WITH CRISIS [None]
  - OCULAR ICTERUS [None]
  - NAUSEA [None]
